FAERS Safety Report 6274647-4 (Version None)
Quarter: 2009Q3

REPORT INFORMATION
  Report Type: 
  Country: None (occurrence: None)
  Receive Date: 20090717
  Receipt Date: 20090710
  Transmission Date: 20100115
  Serious: Yes (Hospitalization)
  Sender: FDA-Public Use
  Company Number: 2009PV000051

PATIENT
  Age: 53 Year
  Sex: Female

DRUGS (2)
  1. DEPOCYT [Suspect]
     Indication: METASTASES TO MENINGES
     Dosage: 50 MG'; 1X; INTH
     Route: 037
     Dates: start: 20090504, end: 20090504
  2. ONDANSETRON (CON.) [Concomitant]

REACTIONS (11)
  - ALANINE AMINOTRANSFERASE INCREASED [None]
  - ASPARTATE AMINOTRANSFERASE INCREASED [None]
  - ASTHENIA [None]
  - BALANCE DISORDER [None]
  - BONE MARROW FAILURE [None]
  - FALL [None]
  - HEADACHE [None]
  - LEUKOPENIA [None]
  - MALAISE [None]
  - NAUSEA [None]
  - PLATELET COUNT DECREASED [None]
